FAERS Safety Report 17111629 (Version 1)
Quarter: 2019Q4

REPORT INFORMATION
  Report Type: Spontaneous
  Country: US (occurrence: US)
  Receive Date: 20191204
  Receipt Date: 20191204
  Transmission Date: 20200122
  Serious: Yes (Other)
  Sender: FDA-Public Use
  Company Number: US-ELI_LILLY_AND_COMPANY-US201911010130

PATIENT
  Age: 78 Year
  Sex: Male

DRUGS (1)
  1. CYMBALTA [Suspect]
     Active Substance: DULOXETINE HYDROCHLORIDE
     Indication: PRODUCT USED FOR UNKNOWN INDICATION
     Dosage: 30 MG, UNKNOWN IN NOVEMBER, DECEMBER AND FEBRUARY
     Dates: start: 2015

REACTIONS (5)
  - Arthralgia [Unknown]
  - Cardiac disorder [Unknown]
  - Anxiety disorder [Unknown]
  - Musculoskeletal pain [Unknown]
  - Seasonal affective disorder [Unknown]
